FAERS Safety Report 24676089 (Version 7)
Quarter: 2025Q4

REPORT INFORMATION
  Report Type: Report from Study
  Country: HN (occurrence: HN)
  Receive Date: 20241128
  Receipt Date: 20251214
  Transmission Date: 20260117
  Serious: No
  Sender: PFIZER
  Company Number: HN-PFIZER INC-PV202400147671

PATIENT
  Age: 11 Year
  Sex: Female

DRUGS (2)
  1. GENOTROPIN [Suspect]
     Active Substance: SOMATROPIN
     Dosage: 1.5 MG, DAILY
  2. GENOTROPIN [Suspect]
     Active Substance: SOMATROPIN
     Dosage: 1.5 MG, DAILY
     Dates: end: 20251125

REACTIONS (5)
  - Device physical property issue [Unknown]
  - Device delivery system issue [Unknown]
  - Device deployment issue [Unknown]
  - Device mechanical issue [Unknown]
  - Drug dose omission by device [Unknown]
